FAERS Safety Report 21458313 (Version 1)
Quarter: 2022Q4

REPORT INFORMATION
  Report Type: Spontaneous
  Country: US (occurrence: None)
  Receive Date: 20221013
  Receipt Date: 20221013
  Transmission Date: 20230113
  Serious: Yes (Other)
  Sender: FDA-Public Use
  Company Number: None

PATIENT
  Age: 64 Year
  Sex: Female
  Weight: 67.5 kg

DRUGS (1)
  1. ATORVASTATIN [Suspect]
     Active Substance: ATORVASTATIN
     Indication: Blood cholesterol
     Dates: start: 20160901, end: 20220910

REACTIONS (8)
  - Arthralgia [None]
  - Pain in extremity [None]
  - Muscle spasms [None]
  - Muscle spasms [None]
  - Dizziness [None]
  - Nausea [None]
  - Hyperhidrosis [None]
  - Loss of consciousness [None]

NARRATIVE: CASE EVENT DATE: 20220501
